FAERS Safety Report 4870729-X (Version None)
Quarter: 2005Q4

REPORT INFORMATION
  Report Type: 
  Country: None (occurrence: None)
  Receive Date: 20051228
  Receipt Date: 20051220
  Transmission Date: 20060501
  Serious: Yes (Life-Threatening)
  Sender: FDA-Public Use
  Company Number: ST-2005-008781

PATIENT
  Age: 83 Year
  Sex: Female

DRUGS (3)
  1. OLMETEC [Suspect]
     Indication: HYPERTENSION
     Dosage: 10 MG QD PO
     Route: 048
     Dates: start: 20050806, end: 20051003
  2. NORVASC [Suspect]
     Indication: HYPERTENSION
     Dosage: 5 MG QD PO
     Route: 048
     Dates: start: 20050806, end: 20051003
  3. MAIBASTAN [Concomitant]

REACTIONS (5)
  - ATRIOVENTRICULAR BLOCK SECOND DEGREE [None]
  - DEPRESSED LEVEL OF CONSCIOUSNESS [None]
  - DIZZINESS [None]
  - PALLOR [None]
  - TACHYPNOEA [None]
